FAERS Safety Report 9504106 (Version 1)
Quarter: 2013Q3

REPORT INFORMATION
  Report Type: Spontaneous
  Country: US (occurrence: US)
  Receive Date: 20130906
  Receipt Date: 20130906
  Transmission Date: 20140515
  Serious: Yes (Hospitalization)
  Sender: FDA-Public Use
  Company Number: US-BAYER-2013-106601

PATIENT
  Age: 45 Year
  Sex: Female
  Weight: 104 kg

DRUGS (7)
  1. YASMIN [Suspect]
     Indication: MIGRAINE
  2. LEXAPRO [Concomitant]
     Dosage: 10 MG, DAILY
     Route: 048
     Dates: start: 20060328, end: 20061215
  3. LEXAPRO [Concomitant]
  4. MIDRIN [Concomitant]
     Dosage: UNK
     Dates: start: 20060906
  5. AMOXICILLIN [Concomitant]
     Dosage: 500 MG, UNK
     Route: 048
     Dates: start: 20060922
  6. AMOXICILLIN [Concomitant]
     Dosage: UNK
     Dates: start: 20060929
  7. DEXAMETHASONE [Concomitant]
     Dosage: 0.75 MG, UNK
     Route: 048
     Dates: start: 20060922

REACTIONS (1)
  - Pulmonary embolism [None]
